FAERS Safety Report 6847492-6 (Version None)
Quarter: 2010Q3

REPORT INFORMATION
  Report Type: 
  Country: None (occurrence: None)
  Receive Date: 20100716
  Receipt Date: 20100706
  Transmission Date: 20110219
  Serious: Yes (Other)
  Sender: FDA-Public Use
  Company Number: FR-PFIZER INC-2010038106

PATIENT
  Age: 44 Year
  Sex: Female
  Weight: 50 kg

DRUGS (3)
  1. CHAMPIX [Suspect]
     Dosage: UNK
     Dates: start: 20091201
  2. SERETIDE [Concomitant]
     Dosage: UNK
  3. KARDEGIC [Concomitant]
     Indication: TRANSIENT ISCHAEMIC ATTACK
     Dosage: 75 MG, 1X/DAY
     Route: 048
     Dates: start: 20091201

REACTIONS (6)
  - ABNORMAL BEHAVIOUR [None]
  - AGITATION [None]
  - AMNESIA [None]
  - DELIRIUM [None]
  - MANIA [None]
  - PERSONALITY CHANGE [None]
